FAERS Safety Report 7838511-9 (Version None)
Quarter: 2011Q4

REPORT INFORMATION
  Report Type: 
  Country: None (occurrence: None)
  Receive Date: 20111024
  Receipt Date: 20111012
  Transmission Date: 20120403
  Serious: Yes (Other)
  Sender: FDA-Public Use
  Company Number: NL-GILEAD-2011-0045419

PATIENT

DRUGS (6)
  1. CLARITHROMYCIN [Concomitant]
     Indication: MYCOBACTERIUM AVIUM COMPLEX INFECTION
     Dosage: 500 MG, BID
  2. RITONAVIR [Concomitant]
     Indication: HIV INFECTION
     Dosage: 100 MG, QD
     Dates: start: 20091114
  3. DARUNAVIR ETHANOLATE [Concomitant]
     Indication: HIV INFECTION
     Dosage: 800 MG, QD
     Dates: start: 20091114
  4. RIFABUTIN [Concomitant]
     Indication: MYCOBACTERIUM AVIUM COMPLEX INFECTION
     Dosage: 150 MG, QD
  5. ETHAMBUTOL HYDROCHLORIDE [Concomitant]
     Indication: MYCOBACTERIUM AVIUM COMPLEX INFECTION
     Dosage: 1200 MG, QD
  6. TRUVADA [Suspect]
     Indication: HIV INFECTION
     Dosage: UNK
     Dates: start: 20091119

REACTIONS (3)
  - CSF VIRUS IDENTIFIED [None]
  - GENOTYPE DRUG RESISTANCE TEST POSITIVE [None]
  - NEUROLOGICAL DECOMPENSATION [None]
